FAERS Safety Report 6149034-X (Version None)
Quarter: 2009Q2

REPORT INFORMATION
  Report Type: 
  Country: None (occurrence: None)
  Receive Date: 20090409
  Receipt Date: 20090406
  Transmission Date: 20091009
  Serious: Yes (Other)
  Sender: FDA-Public Use
  Company Number: GB-JNJFOC-20090303039

PATIENT
  Age: 12 Year
  Sex: Female
  Weight: 69 kg

DRUGS (1)
  1. CONCERTA [Suspect]
     Indication: ATTENTION DEFICIT/HYPERACTIVITY DISORDER
     Dosage: INITIATED BEFOR JUL-2008
     Route: 048

REACTIONS (4)
  - BACK PAIN [None]
  - DYSPRAXIA [None]
  - MUSCULOSKELETAL STIFFNESS [None]
  - RAYNAUD'S PHENOMENON [None]
